FAERS Safety Report 8842720 (Version 1)
Quarter: 2012Q4

REPORT INFORMATION
  Report Type: 
  Country: DE (occurrence: DE)
  Receive Date: 20121016
  Receipt Date: 20121016
  Transmission Date: 20130627
  Serious: Yes (Hospitalization)
  Sender: FDA-Public Use
  Company Number: DE-ABBOTT-12P-062-0992755-00

PATIENT
  Sex: Female

DRUGS (4)
  1. KALETRA [Suspect]
     Dosage: The patient took 24 tablets
  2. OLANZAPINE [Suspect]
     Indication: PRODUCT USED FOR UNKNOWN INDICATION
     Dosage: The patient took 24 tablets.
  3. LORAZEPAM [Suspect]
     Indication: PRODUCT USED FOR UNKNOWN INDICATION
     Dosage: The patient took 15 tablets which corresponds 25 mg).
  4. UNSPECIFIED INGREDIENT [Suspect]
     Indication: SUICIDE ATTEMPT

REACTIONS (9)
  - Suicide attempt [Unknown]
  - Electrocardiogram QT prolonged [Recovered/Resolved]
  - Vomiting [Unknown]
  - Somnolence [Unknown]
  - Abdominal discomfort [Unknown]
  - Constipation [Unknown]
  - Anaemia [Unknown]
  - Incorrect dose administered [None]
  - Intentional drug misuse [None]
